FAERS Safety Report 6888867-9 (Version None)
Quarter: 2010Q3

REPORT INFORMATION
  Report Type: 
  Country: None (occurrence: None)
  Receive Date: 20100730
  Receipt Date: 20080107
  Transmission Date: 20110219
  Serious: No
  Sender: FDA-Public Use
  Company Number: US-PFIZER INC-2007094820

PATIENT
  Sex: Female
  Weight: 68.181 kg

DRUGS (4)
  1. LIPITOR [Suspect]
     Indication: BLOOD CHOLESTEROL
     Dates: start: 19970801
  2. HYDROCHLOROTHIAZIDE [Concomitant]
  3. ACETYLSALICYLIC ACID SRT [Concomitant]
  4. OMEPRAZOLE [Concomitant]

REACTIONS (1)
  - BLOOD CHOLESTEROL INCREASED [None]
